FAERS Safety Report 4913582-8 (Version None)
Quarter: 2006Q1

REPORT INFORMATION
  Report Type: 
  Country: None (occurrence: None)
  Receive Date: 20060214
  Receipt Date: 20060214
  Transmission Date: 20060701
  Serious: Yes (Life-Threatening)
  Sender: FDA-Public Use
  Company Number: None

PATIENT
  Sex: Female
  Weight: 57.2 kg

DRUGS (12)
  1. COUMADIN [Suspect]
     Indication: PROPHYLAXIS
     Dosage: 2.5 MG MWF, 5 MG TTHSASU DAILY PO CHRONIC
     Route: 048
  2. COUMADIN [Suspect]
     Indication: PULMONARY EMBOLISM
     Dosage: 2.5 MG MWF, 5 MG TTHSASU DAILY PO CHRONIC
     Route: 048
  3. COUMADIN [Suspect]
     Indication: THROMBOSIS PROPHYLAXIS
     Dosage: 2.5 MG MWF, 5 MG TTHSASU DAILY PO CHRONIC
     Route: 048
  4. ASPIRIN [Concomitant]
  5. METHIMAZOLE [Concomitant]
  6. FLECAINIDE ACETATE [Concomitant]
  7. FUROSEMIDE [Concomitant]
  8. ARICEPT [Concomitant]
  9. MELATONIN [Concomitant]
  10. M.V.I. [Concomitant]
  11. ATENOLOL [Concomitant]
  12. IBUPROFEN [Concomitant]

REACTIONS (4)
  - FALL [None]
  - HAEMORRHAGE INTRACRANIAL [None]
  - HEAD INJURY [None]
  - MENTAL STATUS CHANGES [None]
